FAERS Safety Report 5666570-0 (Version None)
Quarter: 2008Q1

REPORT INFORMATION
  Report Type: 
  Country: None (occurrence: None)
  Receive Date: 20080315
  Receipt Date: 20071219
  Transmission Date: 20080703
  Serious: Yes (Hospitalization)
  Sender: FDA-Public Use
  Company Number: US-ABBOTT-07P-163-0430988-00

PATIENT
  Sex: Female
  Weight: 59.928 kg

DRUGS (5)
  1. HUMIRA [Suspect]
     Indication: CROHN'S DISEASE
     Route: 058
     Dates: start: 20071207
  2. ONDANSETRON [Concomitant]
     Indication: NAUSEA
     Route: 048
     Dates: start: 20071209
  3. PROCHLORPERAZINE EDISYLATE [Concomitant]
     Indication: NAUSEA
     Route: 048
  4. PHENERGAN HCL [Concomitant]
     Indication: NAUSEA
  5. PREDNISONE [Concomitant]
     Indication: DRUG USE FOR UNKNOWN INDICATION
     Dosage: ^TAPERING DOSE^
     Route: 048

REACTIONS (1)
  - NAUSEA [None]
